FAERS Safety Report 4839200-5 (Version None)
Quarter: 2005Q4

REPORT INFORMATION
  Report Type: 
  Country: None (occurrence: None)
  Receive Date: 20051125
  Receipt Date: 20050315
  Transmission Date: 20060501
  Serious: Yes (Hospitalization)
  Sender: FDA-Public Use
  Company Number: HQWYE158616MAR05

PATIENT
  Age: 53 Year
  Sex: Male
  Weight: 77.18 kg

DRUGS (9)
  1. RAPAMUNE [Suspect]
     Indication: PROPHYLAXIS
     Dosage: 4 MG 1X PER 1 DAY; ORAL; 2MG 1X PER 1 DAY;
     Route: 048
     Dates: start: 20020101
  2. DIOVAN [Concomitant]
  3. NORVASC [Concomitant]
  4. PREVACID [Concomitant]
  5. BACTRIM [Concomitant]
  6. MINOCIN [Concomitant]
  7. CYCLOSPORINE [Concomitant]
  8. PREDNISONE [Concomitant]
  9. . [Concomitant]

REACTIONS (2)
  - ESCHERICHIA INFECTION [None]
  - SEPTIC SHOCK [None]
